FAERS Safety Report 19744393 (Version 1)
Quarter: 2021Q3

REPORT INFORMATION
  Report Type: Spontaneous
  Country: US (occurrence: US)
  Receive Date: 20210825
  Receipt Date: 20210825
  Transmission Date: 20211014
  Serious: No
  Sender: FDA-Public Use
  Company Number: US-PERRIGO-21US005495

PATIENT
  Age: 53 Year
  Sex: Female
  Weight: 56.69 kg

DRUGS (6)
  1. PROBIOTICS NOS [Concomitant]
     Active Substance: PROBIOTICS NOS
     Indication: SUPPLEMENTATION THERAPY
     Dosage: UNK
     Route: 065
  2. VITAMIN D                          /00107901/ [Concomitant]
     Active Substance: ERGOCALCIFEROL
     Indication: VITAMIN D DEFICIENCY
     Dosage: UNK
     Route: 065
  3. EVAMIST [Suspect]
     Active Substance: ESTRADIOL
     Dosage: 1.53 MG, QD
     Route: 062
     Dates: start: 202104
  4. EVAMIST [Suspect]
     Active Substance: ESTRADIOL
     Indication: HOT FLUSH
     Dosage: 1.53 MG, QD
     Route: 062
     Dates: start: 202102, end: 202102
  5. EVAMIST [Suspect]
     Active Substance: ESTRADIOL
     Dosage: 4.59 MG, QD
     Route: 062
     Dates: start: 202103, end: 202104
  6. EVAMIST [Suspect]
     Active Substance: ESTRADIOL
     Dosage: 3.06 MG, QD
     Route: 062
     Dates: start: 202102, end: 202103

REACTIONS (13)
  - Poor quality sleep [Not Recovered/Not Resolved]
  - Drug ineffective [Unknown]
  - Abdominal distension [Not Recovered/Not Resolved]
  - Abdominal discomfort [Not Recovered/Not Resolved]
  - Fatigue [Not Recovered/Not Resolved]
  - Arthralgia [Not Recovered/Not Resolved]
  - Back pain [Not Recovered/Not Resolved]
  - Memory impairment [Not Recovered/Not Resolved]
  - Feeling abnormal [Not Recovered/Not Resolved]
  - Pain in extremity [Not Recovered/Not Resolved]
  - Gastrooesophageal reflux disease [Not Recovered/Not Resolved]
  - Constipation [Not Recovered/Not Resolved]
  - Decreased appetite [Not Recovered/Not Resolved]

NARRATIVE: CASE EVENT DATE: 202102
